FAERS Safety Report 23311231 (Version 1)
Quarter: 2023Q4

REPORT INFORMATION
  Report Type: Spontaneous
  Country: AU (occurrence: AU)
  Receive Date: 20231219
  Receipt Date: 20231219
  Transmission Date: 20240109
  Serious: Yes (Other)
  Sender: FDA-Public Use
  Company Number: AU-TEVA-VS-3135195

PATIENT

DRUGS (3)
  1. DESVENLAFAXINE [Suspect]
     Active Substance: DESVENLAFAXINE
     Indication: Anxiety
     Route: 065
     Dates: start: 20231102, end: 20231102
  2. AMPHETAMINE [Concomitant]
     Active Substance: AMPHETAMINE
     Indication: Attention deficit hyperactivity disorder
  3. QUERCETIN [Concomitant]
     Active Substance: QUERCETIN

REACTIONS (5)
  - Dysstasia [Recovered/Resolved]
  - Feeling abnormal [Recovered/Resolved]
  - Feeling drunk [Recovered/Resolved]
  - Disturbance in attention [Recovered/Resolved]
  - Brain fog [Recovered/Resolved]

NARRATIVE: CASE EVENT DATE: 20231102
